FAERS Safety Report 5309285-0 (Version None)
Quarter: 2007Q2

REPORT INFORMATION
  Report Type: 
  Country: None (occurrence: None)
  Receive Date: 20070424
  Receipt Date: 20070424
  Transmission Date: 20071010
  Serious: Yes (Other)
  Sender: FDA-Public Use
  Company Number: None

PATIENT
  Sex: Male
  Weight: 78.9259 kg

DRUGS (2)
  1. LOVASTATIN [Suspect]
     Indication: BLOOD CHOLESTEROL INCREASED
     Dosage: 20 MG -1/2 TABLET PER DAY PO
     Route: 048
     Dates: start: 20040820, end: 20060801
  2. LOVASTATIN [Suspect]
     Indication: BLOOD CHOLESTEROL INCREASED
     Dosage: 40 MG  PER DAY PO
     Route: 048
     Dates: start: 20060801, end: 20070417

REACTIONS (10)
  - ARTHRALGIA [None]
  - BACK PAIN [None]
  - CHRONIC LYMPHOCYTIC LEUKAEMIA [None]
  - INTERVERTEBRAL DISC DEGENERATION [None]
  - MUSCLE SPASMS [None]
  - PERICARDITIS [None]
  - PHARYNGITIS [None]
  - RESTLESS LEGS SYNDROME [None]
  - SPLENOMEGALY [None]
  - SYNCOPE [None]
